FAERS Safety Report 4614864-X (Version None)
Quarter: 2005Q1

REPORT INFORMATION
  Report Type: 
  Country: None (occurrence: None)
  Receive Date: 20050318
  Receipt Date: 20050318
  Transmission Date: 20050727
  Serious: Yes (Life-Threatening, Hospitalization, Disabling)
  Sender: FDA-Public Use
  Company Number: None

PATIENT
  Age: 64 Year
  Sex: Male
  Weight: 86 kg

DRUGS (8)
  1. BUPROPION    75MG [Suspect]
     Indication: DEPRESSION
     Dosage: 150MG   BID   ORAL
     Route: 048
     Dates: start: 20040707, end: 20041221
  2. BUPROPION    75MG [Suspect]
     Indication: SMOKING CESSATION THERAPY
     Dosage: 150MG   BID   ORAL
     Route: 048
     Dates: start: 20040707, end: 20041221
  3. FORMOTEROL [Concomitant]
  4. NIFEDIPINE [Concomitant]
  5. ISOSORBIDE MONONITRATE [Concomitant]
  6. METOPROLOL SUCCINATE [Concomitant]
  7. ALBUTEROL [Concomitant]
  8. SIMVASTATIN [Concomitant]

REACTIONS (4)
  - CONVULSION [None]
  - INJURY [None]
  - ROAD TRAFFIC ACCIDENT [None]
  - TRAUMATIC BRAIN INJURY [None]
